FAERS Safety Report 19977160 (Version 1)
Quarter: 2021Q4

REPORT INFORMATION
  Report Type: Spontaneous
  Country: CA (occurrence: CA)
  Receive Date: 20211020
  Receipt Date: 20211020
  Transmission Date: 20220303
  Serious: Yes (Hospitalization)
  Sender: FDA-Public Use
  Company Number: CA-LUPIN PHARMACEUTICALS INC.-2021-19937

PATIENT
  Age: 59 Year
  Sex: Male

DRUGS (14)
  1. GABAPENTIN [Suspect]
     Active Substance: GABAPENTIN
     Indication: Bipolar disorder
     Dosage: 300 MILLIGRAM, TID
     Route: 048
  2. GABAPENTIN [Suspect]
     Active Substance: GABAPENTIN
     Indication: Somatic delusion
     Dosage: UNK, DOSE DECREASED
     Route: 048
  3. ZOPICLONE [Suspect]
     Active Substance: ZOPICLONE
     Indication: Electroencephalogram abnormal
     Dosage: 7.5 MILLIGRAM, QID
     Route: 065
  4. ZOPICLONE [Suspect]
     Active Substance: ZOPICLONE
     Indication: Irritability
     Dosage: 7.5 MILLIGRAM, QD (AT BEDTIME)
     Route: 065
  5. ZOPICLONE [Suspect]
     Active Substance: ZOPICLONE
     Indication: Bipolar disorder
  6. ZOPICLONE [Suspect]
     Active Substance: ZOPICLONE
     Indication: Somatic delusion
  7. LURASIDONE [Suspect]
     Active Substance: LURASIDONE
     Indication: Bipolar disorder
     Dosage: 120 MILLIGRAM, QD EVERY MORNING
     Route: 048
  8. LURASIDONE [Suspect]
     Active Substance: LURASIDONE
     Indication: Somatic delusion
  9. VENLAFAXINE HYDROCHLORIDE [Suspect]
     Active Substance: VENLAFAXINE HYDROCHLORIDE
     Indication: Bipolar disorder
     Dosage: 75 MILLIGRAM, QD
     Route: 048
  10. VENLAFAXINE HYDROCHLORIDE [Suspect]
     Active Substance: VENLAFAXINE HYDROCHLORIDE
     Indication: Somatic delusion
  11. CLOZAPINE [Suspect]
     Active Substance: CLOZAPINE
     Indication: Bipolar disorder
     Dosage: 25 MILLIGRAM, QD NIGHTLY
     Route: 048
  12. CLOZAPINE [Suspect]
     Active Substance: CLOZAPINE
     Indication: Somatic delusion
     Dosage: UNK, DOSE INCREASED
     Route: 048
  13. PHENELZINE [Concomitant]
     Active Substance: PHENELZINE
     Indication: Bipolar disorder
     Dosage: 45 MILLIGRAM, BID
     Route: 048
  14. PHENELZINE [Concomitant]
     Active Substance: PHENELZINE
     Indication: Somatic delusion

REACTIONS (3)
  - Drug ineffective [Unknown]
  - Drug ineffective for unapproved indication [Unknown]
  - Off label use [Unknown]
